FAERS Safety Report 5415386-9 (Version None)
Quarter: 2007Q3

REPORT INFORMATION
  Report Type: 
  Country: None (occurrence: None)
  Receive Date: 20070813
  Receipt Date: 20070813
  Transmission Date: 20080115
  Serious: Yes (Hospitalization, Other)
  Sender: FDA-Public Use
  Company Number: None

PATIENT
  Age: 68 Year
  Sex: Female

DRUGS (1)
  1. RAMIPRIL [Suspect]
     Dosage: 5 MG PO DAILY
     Route: 048
     Dates: start: 20061101

REACTIONS (2)
  - ANGIOEDEMA [None]
  - OBSTRUCTIVE AIRWAYS DISORDER [None]
